FAERS Safety Report 9896337 (Version 1)
Quarter: 2014Q1

REPORT INFORMATION
  Report Type: Spontaneous
  Country: US (occurrence: US)
  Receive Date: 20140213
  Receipt Date: 20140213
  Transmission Date: 20141002
  Serious: No
  Sender: FDA-Public Use
  Company Number: US-BRISTOL-MYERS SQUIBB COMPANY-19074103

PATIENT
  Age: 67 Year
  Sex: Female
  Weight: 72.56 kg

DRUGS (14)
  1. ABATACEPT SUBQ INJECTION 125MG/ML [Suspect]
     Dosage: 1 DF : 125MG/ML?EVERY WEEK
     Route: 058
  2. METHOTREXATE [Concomitant]
     Dosage: INJ 125MG/ML
  3. ARALEN HCL [Concomitant]
  4. ARALEN HCL [Concomitant]
     Dosage: TAB
  5. FOLIC ACID [Concomitant]
     Dosage: TAB
  6. PREDNISONE [Concomitant]
     Dosage: TAB
  7. LIPITOR [Concomitant]
     Dosage: TAB
  8. NEXIUM [Concomitant]
     Dosage: CAP
  9. PROBIOTICA [Concomitant]
     Dosage: CAP
  10. FISH OIL [Concomitant]
     Dosage: CAP
  11. VITAMIN C [Concomitant]
     Dosage: CHW
  12. CALCIUM [Concomitant]
     Dosage: TAB
  13. ZINC [Concomitant]
     Dosage: CAP
  14. ECHINACEA [Concomitant]
     Dosage: CAP

REACTIONS (1)
  - Oral mucosal blistering [Recovered/Resolved]
